FAERS Safety Report 8549292-8 (Version None)
Quarter: 2012Q3

REPORT INFORMATION
  Report Type: 
  Country: None (occurrence: None)
  Receive Date: 20120730
  Receipt Date: 20120719
  Transmission Date: 20120928
  Serious: Yes (Hospitalization)
  Sender: FDA-Public Use
  Company Number: JP-UCBSA-061097

PATIENT
  Age: 62 Year
  Sex: Female

DRUGS (15)
  1. RHEUMATREX [Suspect]
     Indication: RHEUMATOID ARTHRITIS
     Route: 048
     Dates: start: 20120621, end: 20120622
  2. RHEUMATREX [Suspect]
     Route: 048
     Dates: start: 20120510, end: 20120621
  3. TRANEXAMIC ACID [Concomitant]
     Dosage: DAILY DOSE-750 MG
     Dates: start: 20110329
  4. ETIZOLAM [Concomitant]
     Dosage: DAILY DOSE-1 MG
     Dates: start: 20120417
  5. FOLIC ACID [Concomitant]
     Dates: start: 20120512, end: 20120623
  6. ETODOLAC [Concomitant]
     Dosage: DAILY DOSE-400 MG
     Dates: start: 20120315
  7. ASCORBIC ACID_CALCIUM PANTOTHENATE [Concomitant]
     Dosage: DAILY DOSE- 3 TAB
     Dates: start: 20110329
  8. HYDROQUINONE [Concomitant]
     Dosage: QS
     Dates: start: 20110329
  9. KETOTIFEN FUMARATE [Concomitant]
     Dosage: DAILY DOSE-QS
     Dates: start: 20100922
  10. CIMZIA [Suspect]
     Indication: RHEUMATOID ARTHRITIS
     Route: 058
     Dates: start: 20120509, end: 20120620
  11. TAUROMIN [Concomitant]
     Dosage: DAILY DOSE-12 TAB
     Dates: start: 19850101
  12. SENNOSIDE [Concomitant]
     Dosage: DAILY DOSE-QS
     Dates: start: 20120522
  13. L-CYSTEINE [Concomitant]
     Dosage: DAILY DOSE-240 MG
     Dates: start: 20110329
  14. MISOPROSTOL [Concomitant]
     Dosage: DAILY DOSE-400 MCG
     Dates: start: 20120417
  15. SODIUM HYALURONATE [Concomitant]
     Dosage: QS
     Dates: start: 20100820

REACTIONS (1)
  - PNEUMOCYSTIS JIROVECI PNEUMONIA [None]
